FAERS Safety Report 4589724-3 (Version None)
Quarter: 2005Q1

REPORT INFORMATION
  Report Type: 
  Country: None (occurrence: None)
  Receive Date: 20050217
  Receipt Date: 20050204
  Transmission Date: 20050727
  Serious: Yes (Life-Threatening)
  Sender: FDA-Public Use
  Company Number: 2005-DE-00364ZA

PATIENT
  Age: 12 Day
  Sex: Male

DRUGS (2)
  1. VIRAMUNE [Suspect]
     Indication: PROPHYLAXIS AGAINST HIV INFECTION
     Dosage: 50MG/5ML,2 MG/KG PO    (SEE TEXT)
     Route: 048
     Dates: end: 20050304
  2. RETROVIR [Suspect]
     Indication: PROPHYLAXIS AGAINST HIV INFECTION
     Dosage: PO
     Route: 048
     Dates: end: 20050113

REACTIONS (1)
  - NECROTISING ENTEROCOLITIS NEONATAL [None]
